FAERS Safety Report 5248928-7 (Version None)
Quarter: 2007Q1

REPORT INFORMATION
  Report Type: 
  Country: None (occurrence: None)
  Receive Date: 20070228
  Receipt Date: 20061026
  Transmission Date: 20070707
  Serious: No
  Sender: FDA-Public Use
  Company Number: US-GLAXOSMITHKLINE-A0625072A

PATIENT
  Sex: Male

DRUGS (4)
  1. ZIAGEN [Suspect]
     Indication: HIV INFECTION
     Route: 048
  2. DDI [Concomitant]
  3. EPIVIR [Concomitant]
  4. ACYCLOVIR [Concomitant]

REACTIONS (5)
  - DIARRHOEA [None]
  - HYPERSENSITIVITY [None]
  - INFLUENZA [None]
  - MALAISE [None]
  - PYREXIA [None]
